FAERS Safety Report 8785007 (Version 1)
Quarter: 2012Q4

REPORT INFORMATION
  Report Type: 
  Country: BE (occurrence: BE)
  Receive Date: 20120914
  Receipt Date: 20120914
  Transmission Date: 20130627
  Serious: Yes (Death, Hospitalization)
  Sender: FDA-Public Use
  Company Number: BE-JNJFOC-20120904082

PATIENT
  Age: 46 Year
  Sex: Male

DRUGS (5)
  1. ITRACONAZOLE [Suspect]
     Indication: BRONCHOPULMONARY ASPERGILLOSIS ALLERGIC
     Route: 065
  2. CORTICOSTEROIDS [Suspect]
     Indication: BRONCHOPULMONARY ASPERGILLOSIS ALLERGIC
     Route: 065
  3. VORICONAZOLE [Suspect]
     Indication: PULMONARY NECROSIS
     Route: 042
  4. VORICONAZOLE [Suspect]
     Indication: PULMONARY NECROSIS
     Route: 042
  5. VORICONAZOLE [Suspect]
     Indication: PULMONARY NECROSIS
     Route: 042

REACTIONS (1)
  - Bronchopulmonary aspergillosis [Fatal]
